FAERS Safety Report 19646525 (Version 1)
Quarter: 2021Q3

REPORT INFORMATION
  Report Type: Spontaneous
  Country: US (occurrence: US)
  Receive Date: 20210802
  Receipt Date: 20210802
  Transmission Date: 20211014
  Serious: Yes (Hospitalization)
  Sender: FDA-Public Use
  Company Number: None

PATIENT
  Age: 61 Year
  Sex: Male
  Weight: 83.91 kg

DRUGS (1)
  1. BACLOFEN (BACLOFEN 10MG TAB) [Suspect]
     Active Substance: BACLOFEN
     Indication: GASTROOESOPHAGEAL REFLUX DISEASE
     Route: 048
     Dates: start: 20210402, end: 20210412

REACTIONS (10)
  - Haemodialysis [None]
  - Sedation [None]
  - Dyskinesia [None]
  - Disorientation [None]
  - Hallucination [None]
  - Inappropriate schedule of product administration [None]
  - Paranoia [None]
  - Confusional state [None]
  - Pneumonia [None]
  - Dizziness [None]

NARRATIVE: CASE EVENT DATE: 20210407
